FAERS Safety Report 5871361-1 (Version None)
Quarter: 2008Q3

REPORT INFORMATION
  Report Type: 
  Country: None (occurrence: None)
  Receive Date: 20080902
  Receipt Date: 20080730
  Transmission Date: 20090109
  Serious: Yes (Other)
  Sender: FDA-Public Use
  Company Number: 2008S1007577

PATIENT
  Age: 79 Year
  Sex: Female

DRUGS (2)
  1. PHOSPHOSODA  (SODIUM PHOSPHATE DIBASIC / SODIUM PHOSPHATE MONOBASIC) [Suspect]
     Dosage: 45 ML;169;PO;X1
     Route: 048
     Dates: start: 20080501, end: 20080501
  2. METFORMIN HCL [Suspect]
     Indication: DIABETES MELLITUS
     Dosage: 850 MG;TID, PO
     Route: 048
     Dates: start: 20070814, end: 20080519

REACTIONS (10)
  - ABDOMINAL PAIN [None]
  - ANURIA [None]
  - ASTHENIA [None]
  - BACTERIURIA [None]
  - BLOOD CREATINE INCREASED [None]
  - HAEMODIALYSIS [None]
  - LACTIC ACIDOSIS [None]
  - MALAISE [None]
  - NAUSEA [None]
  - VOMITING [None]
